FAERS Safety Report 11343205 (Version 2)
Quarter: 2015Q3

REPORT INFORMATION
  Report Type: Spontaneous
  Country: ZA (occurrence: ZA)
  Receive Date: 20150806
  Receipt Date: 20150810
  Transmission Date: 20151125
  Serious: Yes (Other)
  Sender: FDA-Public Use
  Company Number: ZA-ASTRAZENECA-2015SE74629

PATIENT

DRUGS (3)
  1. VALPROIC ACID. [Concomitant]
     Active Substance: VALPROIC ACID
  2. EPILIM [Interacting]
     Active Substance: VALPROATE SODIUM
     Route: 065
  3. MEROPENEM. [Suspect]
     Active Substance: MEROPENEM
     Dosage: 1 G, EVERY EIGHT HOURS, NON AZ PRODUCT
     Route: 065

REACTIONS (2)
  - Seizure [Unknown]
  - Inhibitory drug interaction [Unknown]
